FAERS Safety Report 6251181-9 (Version None)
Quarter: 2009Q2

REPORT INFORMATION
  Report Type: 
  Country: None (occurrence: None)
  Receive Date: 20090630
  Receipt Date: 20080728
  Transmission Date: 20091009
  Serious: No
  Sender: FDA-Public Use
  Company Number: US-ABBOTT-08P-163-0466263-00

PATIENT
  Sex: Female

DRUGS (3)
  1. ZEMPLAR [Suspect]
     Indication: HYPERPARATHYROIDISM SECONDARY
     Dates: start: 20080301
  2. ONE A DAY [Concomitant]
     Indication: DRUG USE FOR UNKNOWN INDICATION
  3. CALCIUM-SANDOZ [Concomitant]
     Indication: DRUG USE FOR UNKNOWN INDICATION

REACTIONS (3)
  - BLOOD PARATHYROID HORMONE DECREASED [None]
  - BLOOD THYROID STIMULATING HORMONE DECREASED [None]
  - FATIGUE [None]
